FAERS Safety Report 23357307 (Version 1)
Quarter: 2023Q4

REPORT INFORMATION
  Report Type: Spontaneous
  Country: US (occurrence: None)
  Receive Date: 20231230
  Receipt Date: 20231230
  Transmission Date: 20240110
  Serious: Yes (Disabling, Other)
  Sender: FDA-Public Use
  Company Number: None

PATIENT
  Age: 31 Year
  Sex: Female
  Weight: 112.5 kg

DRUGS (2)
  1. SEMAGLUTIDE [Suspect]
     Active Substance: SEMAGLUTIDE
     Indication: Polycystic ovaries
     Dates: start: 20230830, end: 20230906
  2. SEMAGLUTIDE [Suspect]
     Active Substance: SEMAGLUTIDE
     Indication: Glucose tolerance impaired

REACTIONS (6)
  - Panic attack [None]
  - Suicidal ideation [None]
  - Insomnia [None]
  - Depression [None]
  - Anxiety [None]
  - Anxiety [None]

NARRATIVE: CASE EVENT DATE: 20230909
